FAERS Safety Report 8935025 (Version 1)
Quarter: 2012Q4

REPORT INFORMATION
  Report Type: 
  Country: US (occurrence: US)
  Receive Date: 20121129
  Receipt Date: 20121129
  Transmission Date: 20130627
  Serious: No
  Sender: FDA-Public Use
  Company Number: US-TEVA-372886USA

PATIENT
  Age: 30 Year
  Sex: Female
  Weight: 68.1 kg

DRUGS (3)
  1. PLAN B ONE-STEP [Suspect]
     Indication: POST COITAL CONTRACEPTION
     Dosage: 1.5 Milligram Daily;
     Route: 048
     Dates: start: 20121124, end: 20121124
  2. PRENATAL VITAMINS [Concomitant]
     Indication: BREAST FEEDING
  3. IRON SUPPLEMENT [Concomitant]
     Indication: BREAST FEEDING

REACTIONS (2)
  - Breast disorder [Not Recovered/Not Resolved]
  - Breast pain [Not Recovered/Not Resolved]
